FAERS Safety Report 7148688-9 (Version None)
Quarter: 2010Q4

REPORT INFORMATION
  Report Type: 
  Country: None (occurrence: None)
  Receive Date: 20101209
  Receipt Date: 20100929
  Transmission Date: 20110411
  Serious: No
  Sender: FDA-Public Use
  Company Number: US-BAYER-201022091BCC

PATIENT
  Sex: Female
  Weight: 53.182 kg

DRUGS (1)
  1. ALEVE [Suspect]

REACTIONS (1)
  - ENZYME ABNORMALITY [None]
